FAERS Safety Report 17258380 (Version 1)
Quarter: 2019Q4

REPORT INFORMATION
  Report Type: Spontaneous
  Country: US (occurrence: US)
  Receive Date: 20191217
  Receipt Date: 20191217
  Transmission Date: 20200122
  Serious: Yes (Other)
  Sender: FDA-Public Use
  Company Number: None

PATIENT
  Age: 50 Year
  Sex: Female

DRUGS (2)
  1. FLUCONAZOL TABLET 150 [Suspect]
     Active Substance: FLUCONAZOLE
     Route: 048
     Dates: start: 20160728
  2. FLUCONAZOL TABLET 150MG [Suspect]
     Active Substance: FLUCONAZOLE

REACTIONS (3)
  - Rectal haemorrhage [None]
  - Vaginal haemorrhage [None]
  - Product substitution issue [None]

NARRATIVE: CASE EVENT DATE: 20160728
